FAERS Safety Report 8796136 (Version 1)
Quarter: 2012Q4

REPORT INFORMATION
  Report Type: 
  Country: DE (occurrence: GB)
  Receive Date: 20120920
  Receipt Date: 20120920
  Transmission Date: 20130627
  Serious: Yes (Hospitalization)
  Sender: FDA-Public Use
  Company Number: GB-BRISTOL-MYERS SQUIBB COMPANY-16966889

PATIENT
  Age: 47 Year
  Sex: Female
  Weight: 67 kg

DRUGS (10)
  1. CETUXIMAB [Suspect]
  2. CAPECITABINE [Suspect]
     Indication: COLON CANCER
     Dosage: Tab, 14Dec2006-8Jan2007:1650g, Unknwn-30Jan2007:2300mg, 1Feb2007-Ongoin
     Route: 048
     Dates: start: 20061214
  3. OXALIPLATIN [Suspect]
     Indication: COLON CANCER
     Dosage: Inf, 10.4762mg
     Route: 042
     Dates: start: 20061214
  4. ASPIRIN [Suspect]
     Dates: start: 2007, end: 20070116
  5. BEVACIZUMAB [Suspect]
     Route: 042
     Dates: start: 20061214
  6. METOCLOPRAMIDE [Concomitant]
  7. LOPERAMIDE [Concomitant]
  8. LANSOPRAZOLE [Concomitant]
  9. LORAZEPAM [Concomitant]
  10. DEXAMETHASONE [Concomitant]

REACTIONS (3)
  - Throat tightness [Recovered/Resolved]
  - Faeces discoloured [Recovered/Resolved]
  - Vomiting [Recovered/Resolved]
